FAERS Safety Report 6916464-5 (Version None)
Quarter: 2010Q3

REPORT INFORMATION
  Report Type: 
  Country: None (occurrence: None)
  Receive Date: 20100810
  Receipt Date: 20100729
  Transmission Date: 20110219
  Serious: Yes (Other)
  Sender: FDA-Public Use
  Company Number: PHHY2010JP50234

PATIENT
  Sex: Male

DRUGS (9)
  1. ICL670A ICL+DISTAB [Suspect]
     Indication: IRON OVERLOAD
     Dosage: 500 MG DAILY
     Route: 048
     Dates: start: 20091119, end: 20091216
  2. ICL670A ICL+DISTAB [Suspect]
     Dosage: 1000 MG DAILY
     Route: 048
     Dates: start: 20091217, end: 20100215
  3. ICL670A ICL+DISTAB [Suspect]
     Dosage: 500 MG DAILY
     Route: 048
     Dates: start: 20100216, end: 20100323
  4. SLOW-K [Concomitant]
     Dosage: 1200 MG
     Route: 048
  5. HYDREA [Concomitant]
     Indication: MYELOFIBROSIS
     Dosage: 1000 MG
     Route: 048
  6. NU-LOTAN [Concomitant]
     Dosage: 25 MG
     Route: 048
  7. LASIX [Concomitant]
     Dosage: 40 MG
     Route: 048
  8. ALDACTONE [Concomitant]
  9. OMEPRAL [Concomitant]
     Dosage: 10 MG
     Route: 048

REACTIONS (2)
  - HYPOACUSIS [None]
  - MALIGNANT NEOPLASM PROGRESSION [None]
